FAERS Safety Report 7618322-X (Version None)
Quarter: 2011Q3

REPORT INFORMATION
  Report Type: 
  Country: None (occurrence: None)
  Receive Date: 20110718
  Receipt Date: 20110701
  Transmission Date: 20111222
  Serious: Yes (Other)
  Sender: FDA-Public Use
  Company Number: US-SANOFI-AVENTIS-2011SA045215

PATIENT
  Age: 79 Year
  Sex: Female

DRUGS (4)
  1. METOPROLOL TARTRATE [Concomitant]
  2. LEVAQUIN [Suspect]
     Indication: URINARY TRACT INFECTION
     Route: 065
  3. ATORVASTATIN [Concomitant]
  4. PLAVIX [Suspect]
     Indication: STENT PLACEMENT
     Route: 048
     Dates: start: 20080101, end: 20110630

REACTIONS (5)
  - VISUAL IMPAIRMENT [None]
  - COAGULOPATHY [None]
  - FALL [None]
  - DIZZINESS [None]
  - CONTUSION [None]
